FAERS Safety Report 12106334 (Version 1)
Quarter: 2016Q1

REPORT INFORMATION
  Report Type: Report from Study
  Country: DE (occurrence: DE)
  Receive Date: 20160223
  Receipt Date: 20160223
  Transmission Date: 20160526
  Serious: Yes (Hospitalization)
  Sender: FDA-Public Use
  Company Number: DE-BAYER-2016-031416

PATIENT
  Age: 76 Year
  Sex: Female
  Weight: 77 kg

DRUGS (3)
  1. ADEMPAS [Suspect]
     Active Substance: RIOCIGUAT
     Indication: PULMONARY ARTERIAL HYPERTENSION
     Dosage: 1 MG, TID
     Route: 048
     Dates: start: 20160204, end: 20160213
  2. SILDENAFIL. [Concomitant]
     Active Substance: SILDENAFIL
     Dosage: DAILY DOSE 60 MG
  3. MACITENTAN [Concomitant]
     Active Substance: MACITENTAN
     Dosage: DAILY DOSE 10 MG
     Dates: start: 20141117, end: 20150204

REACTIONS (1)
  - Right ventricular failure [Recovering/Resolving]

NARRATIVE: CASE EVENT DATE: 20160213
